FAERS Safety Report 6659816-3 (Version None)
Quarter: 2010Q1

REPORT INFORMATION
  Report Type: 
  Country: None (occurrence: None)
  Receive Date: 20100330
  Receipt Date: 20100330
  Transmission Date: 20100710
  Serious: Yes (Hospitalization)
  Sender: FDA-Public Use
  Company Number: None

PATIENT
  Sex: Female
  Weight: 52 kg

DRUGS (2)
  1. SORAFENIB 400 MG DAILY ORAL [Suspect]
     Indication: PANCREATIC CARCINOMA
     Dosage: 400 MG DAILY ORAL
     Route: 048
     Dates: start: 20100118, end: 20100315
  2. ERLOTINIB 150 MG DAILY ORAL [Suspect]
     Indication: PANCREATIC CARCINOMA
     Dosage: 150 MG DAILY ORAL
     Route: 048
     Dates: start: 20100118, end: 20100315

REACTIONS (7)
  - AMMONIA INCREASED [None]
  - CONFUSIONAL STATE [None]
  - DEPRESSION [None]
  - LIVER FUNCTION TEST ABNORMAL [None]
  - MALIGNANT NEOPLASM PROGRESSION [None]
  - PANCREATIC CARCINOMA [None]
  - PORTAL VEIN THROMBOSIS [None]
